FAERS Safety Report 24250982 (Version 1)
Quarter: 2024Q3

REPORT INFORMATION
  Report Type: Spontaneous
  Country: US (occurrence: None)
  Receive Date: 20240825
  Receipt Date: 20240825
  Transmission Date: 20241016
  Serious: Yes (Hospitalization)
  Sender: Public
  Company Number: None

PATIENT
  Age: 77 Year
  Sex: Male
  Weight: 128.9 kg

DRUGS (1)
  1. VEKLURY [Suspect]
     Active Substance: REMDESIVIR
     Indication: COVID-19
     Dosage: FREQUENCY : DAILY;?
     Route: 040
     Dates: start: 20240825, end: 20240825

REACTIONS (2)
  - Tachypnoea [None]
  - Respiratory failure [None]

NARRATIVE: CASE EVENT DATE: 20240825
